FAERS Safety Report 4290452-2 (Version None)
Quarter: 2004Q1

REPORT INFORMATION
  Report Type: 
  Country: None (occurrence: None)
  Receive Date: 20040210
  Receipt Date: 20030702
  Transmission Date: 20041129
  Serious: Yes (Disabling, Other)
  Sender: FDA-Public Use
  Company Number: WAES 0307USA00235

PATIENT
  Age: 33 Year
  Sex: Male
  Weight: 93 kg

DRUGS (4)
  1. VICODIN [Concomitant]
  2. CELEBREX [Concomitant]
  3. VIOXX [Suspect]
     Indication: ROTATOR CUFF SYNDROME
     Route: 048
     Dates: start: 20010605, end: 20020601
  4. VIOXX [Suspect]
     Route: 048
     Dates: start: 20010605, end: 20020601

REACTIONS (16)
  - ANXIETY [None]
  - ARTHRALGIA [None]
  - BALANCE DISORDER [None]
  - BLOOD PRESSURE SYSTOLIC INCREASED [None]
  - CARDIOLIPIN ANTIBODY POSITIVE [None]
  - EMOTIONAL DISTRESS [None]
  - EYE IRRITATION [None]
  - HEADACHE [None]
  - JOINT DISLOCATION [None]
  - KERATOCONJUNCTIVITIS SICCA [None]
  - MYELOPROLIFERATIVE DISORDER [None]
  - PAIN [None]
  - PLATELET COUNT INCREASED [None]
  - POLYTRAUMATISM [None]
  - RETINAL VEIN OCCLUSION [None]
  - RETINAL VEIN THROMBOSIS [None]
